FAERS Safety Report 9310542 (Version 1)
Quarter: 2013Q2

REPORT INFORMATION
  Report Type: Spontaneous
  Country: US (occurrence: US)
  Receive Date: 20130527
  Receipt Date: 20130527
  Transmission Date: 20140414
  Serious: No
  Sender: FDA-Public Use
  Company Number: US-PFIZER INC-2013159024

PATIENT
  Sex: Female

DRUGS (1)
  1. LYRICA [Suspect]
     Indication: HERPES ZOSTER
     Dosage: 75 MG, 3X/DAY

REACTIONS (3)
  - Off label use [Unknown]
  - Diarrhoea [Unknown]
  - Gastrointestinal disorder [Unknown]
